FAERS Safety Report 21720087 (Version 2)
Quarter: 2023Q1

REPORT INFORMATION
  Report Type: Spontaneous
  Country: US (occurrence: US)
  Receive Date: 20221213
  Receipt Date: 20230112
  Transmission Date: 20230418
  Serious: Yes (Death, Life-Threatening, Hospitalization, Disabling, Other)
  Sender: FDA-Public Use
  Company Number: US-009507513-2212USA003096

PATIENT
  Sex: Male
  Weight: 76.19 kg

DRUGS (11)
  1. KEYTRUDA [Suspect]
     Active Substance: PEMBROLIZUMAB
     Indication: Bladder cancer
     Dosage: UNK
     Route: 042
     Dates: start: 20210719
  2. ASPIRIN [Concomitant]
     Active Substance: ASPIRIN
  3. CYCLOBENZAPRINE [Concomitant]
     Active Substance: CYCLOBENZAPRINE
  4. FISH OIL [Concomitant]
     Active Substance: FISH OIL
  5. FUROSEMIDE [Concomitant]
     Active Substance: FUROSEMIDE
  6. GABAPENTIN [Concomitant]
     Active Substance: GABAPENTIN
  7. VITAMIN B12 [Concomitant]
     Active Substance: CYANOCOBALAMIN
  8. METFORMIN [Concomitant]
     Active Substance: METFORMIN HYDROCHLORIDE
  9. OXYBUTYNIN [Concomitant]
     Active Substance: OXYBUTYNIN
  10. TYLENOL [Concomitant]
     Active Substance: ACETAMINOPHEN
  11. VITAMIN D3 [Concomitant]
     Active Substance: CHOLECALCIFEROL

REACTIONS (6)
  - Spinal cord infection [Fatal]
  - Paralysis [Unknown]
  - Fall [Unknown]
  - Musculoskeletal disorder [Unknown]
  - Craniocerebral injury [Unknown]
  - Terminal state [Unknown]

NARRATIVE: CASE EVENT DATE: 20220101
